FAERS Safety Report 19170530 (Version 1)
Quarter: 2021Q2

REPORT INFORMATION
  Report Type: Report from Study
  Country: None (occurrence: US)
  Receive Date: 20210423
  Receipt Date: 20210423
  Transmission Date: 20210717
  Serious: Yes (Other)
  Sender: FDA-Public Use
  Company Number: US-ABBVIE-21K-163-3869358-00

PATIENT
  Sex: Female

DRUGS (1)
  1. IMBRUVICA [Suspect]
     Active Substance: IBRUTINIB
     Indication: CHRONIC LYMPHOCYTIC LEUKAEMIA
     Route: 048
     Dates: start: 20150509

REACTIONS (4)
  - Foot fracture [Recovering/Resolving]
  - Fall [Recovered/Resolved]
  - Fall [Recovering/Resolving]
  - Wrist fracture [Recovered/Resolved]

NARRATIVE: CASE EVENT DATE: 2020
